FAERS Safety Report 18996537 (Version 1)
Quarter: 2021Q1

REPORT INFORMATION
  Report Type: Spontaneous
  Country: US (occurrence: US)
  Receive Date: 20210311
  Receipt Date: 20210311
  Transmission Date: 20210420
  Serious: No
  Sender: FDA-Public Use
  Company Number: None

PATIENT
  Age: 54 Year
  Sex: Female
  Weight: 65.25 kg

DRUGS (2)
  1. QUEDEXY XR [Concomitant]
  2. EMGALITY [Suspect]
     Active Substance: GALCANEZUMAB-GNLM
     Indication: MIGRAINE

REACTIONS (3)
  - Night sweats [None]
  - Insomnia [None]
  - Weight increased [None]

NARRATIVE: CASE EVENT DATE: 20210101
